FAERS Safety Report 20730260 (Version 3)
Quarter: 2022Q2

REPORT INFORMATION
  Report Type: Spontaneous
  Country: US (occurrence: US)
  Receive Date: 20220420
  Receipt Date: 20220603
  Transmission Date: 20220721
  Serious: Yes (Other)
  Sender: FDA-Public Use
  Company Number: US-PFIZER INC-202200547822

PATIENT
  Age: 61 Year
  Sex: Male
  Weight: 104.33 kg

DRUGS (3)
  1. LORBRENA [Suspect]
     Active Substance: LORLATINIB
     Indication: Non-small cell lung cancer
     Dosage: 100 MG, DAILY
     Dates: start: 2022, end: 20220527
  2. LORBRENA [Suspect]
     Active Substance: LORLATINIB
     Dosage: 75 MG
  3. LORBRENA [Suspect]
     Active Substance: LORLATINIB
     Dosage: 50 MG

REACTIONS (3)
  - Atelectasis [Unknown]
  - Dyspnoea [Unknown]
  - Chest pain [Unknown]

NARRATIVE: CASE EVENT DATE: 20220101
